FAERS Safety Report 6380844-X (Version None)
Quarter: 2009Q3

REPORT INFORMATION
  Report Type: 
  Country: None (occurrence: None)
  Receive Date: 20090929
  Receipt Date: 20090922
  Transmission Date: 20100115
  Serious: Yes (Hospitalization, Disabling)
  Sender: FDA-Public Use
  Company Number: A0806457A

PATIENT
  Age: 79 Year
  Sex: Male
  Weight: 82.7 kg

DRUGS (12)
  1. LAPATINIB [Suspect]
     Dosage: 1500MG PER DAY
     Route: 048
     Dates: start: 20090720
  2. RADIOTHERAPY [Suspect]
  3. PERCOCET [Concomitant]
     Indication: PAIN
     Route: 048
  4. VANCOMYCIN HCL [Concomitant]
     Route: 048
  5. FUROSEMIDE [Concomitant]
     Indication: ILL-DEFINED DISORDER
     Dosage: 20MG PER DAY
     Route: 048
  6. LISINOPRIL [Concomitant]
     Indication: HYPERTENSION
     Dosage: 5MG PER DAY
     Route: 048
  7. POTASSIUM CHLORIDE [Concomitant]
     Dosage: 20MEQ PER DAY
     Route: 048
  8. SIMVASTATIN [Concomitant]
     Dosage: 20MG PER DAY
     Route: 048
  9. TERAZOSIN HCL [Concomitant]
     Dosage: 5MG AT NIGHT
     Route: 048
  10. INSULIN ASPART [Concomitant]
     Indication: DIABETES MELLITUS
  11. MORPHINE [Concomitant]
     Dosage: 15MG AS REQUIRED
     Route: 048
  12. ALBUTEROL SULFATE AND IPRATROPIUM BROMIDE [Concomitant]
     Indication: CHRONIC OBSTRUCTIVE PULMONARY DISEASE
     Dosage: 1UNIT FOUR TIMES PER DAY
     Route: 055

REACTIONS (6)
  - FALL [None]
  - FEMUR FRACTURE [None]
  - OPERATIVE HAEMORRHAGE [None]
  - PULMONARY EMBOLISM [None]
  - PYREXIA [None]
  - TACHYPNOEA [None]
